FAERS Safety Report 16706186 (Version 13)
Quarter: 2020Q3

REPORT INFORMATION
  Report Type: Spontaneous
  Country: US (occurrence: US)
  Receive Date: 20190815
  Receipt Date: 20200911
  Transmission Date: 20201102
  Serious: Yes (Disabling, Other)
  Sender: FDA-Public Use
  Company Number: US-PFIZER INC-2018426936

PATIENT
  Age: 66 Year
  Sex: Female
  Weight: 91 kg

DRUGS (7)
  1. LYRICA [Suspect]
     Active Substance: PREGABALIN
     Indication: NEURALGIA
     Dosage: 250 MG, DAILY (50 MG, 5 TIMES A DAY/TAKE 1 CAPSULE(S) 5 TIMES A DAY BY ORAL ROUTE)
     Route: 048
  2. LYRICA [Suspect]
     Active Substance: PREGABALIN
     Indication: FACIAL PAIN
  3. LYRICA [Suspect]
     Active Substance: PREGABALIN
     Indication: TRIGEMINAL NEURALGIA
     Dosage: 250 MG, DAILY (1 CAPSULE 5 TIMES A DAY BY MOUTH)
     Route: 048
  4. LYRICA [Suspect]
     Active Substance: PREGABALIN
     Indication: LUMBAR RADICULOPATHY
  5. LYRICA [Suspect]
     Active Substance: PREGABALIN
     Indication: NEURALGIA
  6. LAMICTAL [Concomitant]
     Active Substance: LAMOTRIGINE
     Indication: TRIGEMINAL NEURALGIA
     Dosage: UNK
  7. LYRICA [Suspect]
     Active Substance: PREGABALIN
     Indication: FACIAL NEURALGIA

REACTIONS (9)
  - Arthralgia [Recovering/Resolving]
  - Fatigue [Unknown]
  - Feeling abnormal [Unknown]
  - Memory impairment [Unknown]
  - Product dispensing error [Unknown]
  - Therapeutic product effect incomplete [Unknown]
  - Pain in jaw [Unknown]
  - Arthritis [Recovering/Resolving]
  - Injury [Unknown]
